FAERS Safety Report 10693237 (Version 1)
Quarter: 2015Q1

REPORT INFORMATION
  Report Type: Spontaneous
  Country: BR (occurrence: BR)
  Receive Date: 20150106
  Receipt Date: 20150106
  Transmission Date: 20150720
  Serious: Yes (Other)
  Sender: FDA-Public Use
  Company Number: BR-ABBVIE-15P-020-1329069-00

PATIENT
  Sex: Male
  Weight: 79 kg

DRUGS (7)
  1. DEPAKENE [Suspect]
     Active Substance: VALPROIC ACID
     Indication: SEIZURE
     Route: 048
     Dates: start: 2011, end: 201409
  2. DEPAKOTE ER [Suspect]
     Active Substance: DIVALPROEX SODIUM
     Indication: PRODUCT USED FOR UNKNOWN INDICATION
     Route: 065
  3. PROPRANOLOL [Concomitant]
     Active Substance: PROPRANOLOL\PROPRANOLOL HYDROCHLORIDE
     Indication: BLOOD PRESSURE
     Dosage: 10 MG; IN THE MORNING
     Route: 048
  4. DEPAKENE [Suspect]
     Active Substance: VALPROIC ACID
     Dosage: 1000 MG; 500 MG AT 7 A.M. AND AT 07:30 P.M.
     Route: 048
     Dates: start: 201409
  5. FRISIUM [Concomitant]
     Active Substance: CLOBAZAM
     Indication: EPILEPSY
     Dosage: 20 MG; AT NIGHT
     Route: 048
  6. FRISIUM [Concomitant]
     Active Substance: CLOBAZAM
     Indication: PRODUCT USED FOR UNKNOWN INDICATION
  7. FRISIUM [Concomitant]
     Active Substance: CLOBAZAM
     Indication: SEDATIVE THERAPY

REACTIONS (2)
  - Petit mal epilepsy [Recovering/Resolving]
  - Seizure [Unknown]
